FAERS Safety Report 18704883 (Version 2)
Quarter: 2021Q1

REPORT INFORMATION
  Report Type: Report from Study
  Country: None (occurrence: US)
  Receive Date: 20210105
  Receipt Date: 20210204
  Transmission Date: 20210419
  Serious: Yes (Other)
  Sender: FDA-Public Use
  Company Number: US-ABBVIE-21K-163-3716214-00

PATIENT
  Age: 46 Year
  Sex: Female

DRUGS (1)
  1. HUMIRA [Suspect]
     Active Substance: ADALIMUMAB
     Indication: ANKYLOSING SPONDYLITIS
     Dosage: CITRATE FREE
     Route: 058
     Dates: start: 20201030

REACTIONS (13)
  - Haemorrhage [Unknown]
  - Back disorder [Unknown]
  - Walking aid user [Unknown]
  - Road traffic accident [Unknown]
  - Musculoskeletal disorder [Unknown]
  - Skin discolouration [Unknown]
  - Swelling [Unknown]
  - Road traffic accident [Unknown]
  - Musculoskeletal disorder [Unknown]
  - Orthosis user [Unknown]
  - Concussion [Unknown]
  - Nervous system disorder [Unknown]
  - Hypoaesthesia [Unknown]

NARRATIVE: CASE EVENT DATE: 20201203
